FAERS Safety Report 20341252 (Version 4)
Quarter: 2023Q1

REPORT INFORMATION
  Report Type: Report from Study
  Country: FR (occurrence: FR)
  Receive Date: 20220117
  Receipt Date: 20230310
  Transmission Date: 20230418
  Serious: Yes (Hospitalization)
  Sender: FDA-Public Use
  Company Number: FR-002147023-NVSC2021FR295631

PATIENT
  Age: 2 Year
  Sex: Female
  Weight: 13 kg

DRUGS (16)
  1. TOPOTECAN HYDROCHLORIDE [Suspect]
     Active Substance: TOPOTECAN HYDROCHLORIDE
     Indication: Angiocentric lymphoma refractory
     Dosage: GIVEN FOR 5 DAYS EVERY 21 DAYS
     Route: 042
     Dates: start: 20210618, end: 20210716
  2. TOPOTECAN HYDROCHLORIDE [Suspect]
     Active Substance: TOPOTECAN HYDROCHLORIDE
     Dosage: GIVEN FOR 5 DAYS EVERY 21 DAYS
     Route: 042
     Dates: start: 20210802, end: 20210904
  3. CYCLOPHOSPHAMIDE [Suspect]
     Active Substance: CYCLOPHOSPHAMIDE
     Indication: Angiocentric lymphoma refractory
     Dosage: GIVEN FOR 5 DAYS EVERY 21 DAYS
     Route: 042
     Dates: start: 20210618, end: 20210716
  4. CYCLOPHOSPHAMIDE [Suspect]
     Active Substance: CYCLOPHOSPHAMIDE
     Dosage: GIVEN FOR 5 DAYS EVERY 21 DAYS
     Route: 042
     Dates: start: 20210802, end: 20210904
  5. VENETOCLAX [Suspect]
     Active Substance: VENETOCLAX
     Indication: Angiocentric lymphoma refractory
     Dosage: 120 MG, 1X/DAY
     Route: 065
     Dates: start: 20210616, end: 20210616
  6. VENETOCLAX [Suspect]
     Active Substance: VENETOCLAX
     Dosage: 250 MG, 1X/DAY
     Route: 065
     Dates: start: 20210617, end: 20210906
  7. ETOPOSIDE [Suspect]
     Active Substance: ETOPOSIDE
     Indication: Neuroblastoma
     Dosage: UNK
     Dates: start: 20210304, end: 20210401
  8. CYCLOPHOSPHAMIDE [Suspect]
     Active Substance: CYCLOPHOSPHAMIDE
     Indication: Neuroblastoma
     Dosage: UNK
     Dates: start: 20210421, end: 20210515
  9. CYCLOPHOSPHAMIDE [Suspect]
     Active Substance: CYCLOPHOSPHAMIDE
     Indication: Refractory cancer
     Dosage: GIVEN FOR 5 DAYS EVERY 21 DAYS
     Dates: start: 20210802, end: 20210904
  10. CYCLOPHOSPHAMIDE [Suspect]
     Active Substance: CYCLOPHOSPHAMIDE
     Dosage: GIVEN FOR 5 DAYS EVERY 21 DAYS
     Dates: start: 20210618, end: 20210716
  11. DOXORUBICIN HYDROCHLORIDE [Suspect]
     Active Substance: DOXORUBICIN HYDROCHLORIDE
     Indication: Neuroblastoma
     Dosage: UNK
     Dates: start: 20210421, end: 20210515
  12. NUTRINI [Concomitant]
     Indication: Enteral nutrition
     Dosage: 240 ML, 1X/DAY
     Route: 042
     Dates: start: 20210619, end: 20210717
  13. NUTRINI [Concomitant]
     Dosage: 200 ML, 2X/DAY
     Route: 065
     Dates: start: 20210718
  14. NUTRINI [Concomitant]
     Dosage: 30 ML/HOUR DURING THE NIGHT
     Route: 065
     Dates: start: 20210718, end: 20210907
  15. PREDNISOLONE [Concomitant]
     Active Substance: PREDNISOLONE
     Indication: Nausea
     Dosage: 1 AS REQUIRED
     Route: 048
     Dates: start: 20210621
  16. METHYLPREDNISOLONE [Concomitant]
     Active Substance: METHYLPREDNISOLONE
     Indication: Nausea
     Dosage: 1 AS REQUIRED
     Route: 065
     Dates: start: 20210819

REACTIONS (4)
  - Diarrhoea [Recovered/Resolved]
  - Clostridium colitis [Recovered/Resolved]
  - Dehydration [Recovered/Resolved]
  - Vomiting [Unknown]

NARRATIVE: CASE EVENT DATE: 20210902
